FAERS Safety Report 11089719 (Version 4)
Quarter: 2016Q1

REPORT INFORMATION
  Report Type: Report from Study
  Country: GB (occurrence: GB)
  Receive Date: 20150505
  Receipt Date: 20160202
  Transmission Date: 20160525
  Serious: Yes (Disabling)
  Sender: FDA-Public Use
  Company Number: GB-ROCHE-1573126

PATIENT
  Age: 58 Year
  Sex: Male
  Weight: 87 kg

DRUGS (11)
  1. RANIBIZUMAB [Suspect]
     Active Substance: RANIBIZUMAB
     Dosage: IN THE RIGHT EYE
     Route: 050
     Dates: start: 20140926
  2. OMEPRAZOLE. [Concomitant]
     Active Substance: OMEPRAZOLE
  3. FENOFIBRATE. [Concomitant]
     Active Substance: FENOFIBRATE
     Route: 065
     Dates: start: 2012
  4. RANIBIZUMAB [Suspect]
     Active Substance: RANIBIZUMAB
     Dosage: IN THE RIGHT EYE
     Route: 050
     Dates: start: 20141107, end: 20141107
  5. RANIBIZUMAB [Suspect]
     Active Substance: RANIBIZUMAB
     Dosage: IN THE RIGHT EYE
     Route: 050
     Dates: start: 20150304
  6. RANIBIZUMAB [Suspect]
     Active Substance: RANIBIZUMAB
     Dosage: IN THE RIGHT EYE
     Route: 050
     Dates: start: 20150415
  7. RANIBIZUMAB [Suspect]
     Active Substance: RANIBIZUMAB
     Indication: NEOVASCULAR AGE-RELATED MACULAR DEGENERATION
     Dosage: IN THE RIGHT EYE
     Route: 050
     Dates: start: 20140725
  8. RANIBIZUMAB [Suspect]
     Active Substance: RANIBIZUMAB
     Dosage: IN THE RIGHT EYE
     Route: 050
     Dates: start: 20140822
  9. RANIBIZUMAB [Suspect]
     Active Substance: RANIBIZUMAB
     Dosage: IN THE RIGHT EYE
     Route: 050
     Dates: start: 20141205, end: 20141205
  10. RANIBIZUMAB [Suspect]
     Active Substance: RANIBIZUMAB
     Dosage: IN THE RIGHT EYE
     Route: 050
     Dates: start: 20150123
  11. ROSUVASTATIN [Concomitant]
     Active Substance: ROSUVASTATIN

REACTIONS (2)
  - Psoriasis [Not Recovered/Not Resolved]
  - Skin disorder [Not Recovered/Not Resolved]

NARRATIVE: CASE EVENT DATE: 20141001
